FAERS Safety Report 7302813-5 (Version None)
Quarter: 2011Q1

REPORT INFORMATION
  Report Type: 
  Country: None (occurrence: None)
  Receive Date: 20110218
  Receipt Date: 20101210
  Transmission Date: 20110831
  Serious: No
  Sender: FDA-Public Use
  Company Number: US-BAYER-2011-005988

PATIENT
  Sex: Female
  Weight: 45.351 kg

DRUGS (4)
  1. XANAX [Concomitant]
  2. WELLBUTRIN [Concomitant]
  3. IBUPROFEN [Concomitant]
  4. ALEVE (CAPLET) [Suspect]
     Indication: BACK PAIN
     Dosage: 4 DF, ONCE, BOTTLE COUNT 250S
     Route: 048
     Dates: start: 20101210

REACTIONS (1)
  - DIZZINESS [None]
